FAERS Safety Report 10246741 (Version 1)
Quarter: 2014Q2

REPORT INFORMATION
  Report Type: Spontaneous
  Country: DE (occurrence: DE)
  Receive Date: 20140619
  Receipt Date: 20140619
  Transmission Date: 20141212
  Serious: Yes (Death)
  Sender: FDA-Public Use
  Company Number: DE-MYLANLABS-2014S1014049

PATIENT
  Age: 24 Year
  Sex: Female

DRUGS (11)
  1. VALPROIC ACID [Suspect]
     Indication: GENERALISED TONIC-CLONIC SEIZURE
     Route: 065
  2. LAMOTRIGINE [Suspect]
     Route: 065
  3. ASPIRIN [Suspect]
     Route: 065
  4. PRIMIDONE [Suspect]
     Route: 065
  5. AMOXICILLIN [Suspect]
     Route: 065
  6. CLINDAMYCIN [Suspect]
     Route: 065
  7. DIPYRONE [Suspect]
     Route: 065
  8. PARACETAMOL [Suspect]
     Route: 065
  9. ETILEFRINE [Suspect]
     Route: 065
  10. METOCLOPRAMIDE [Suspect]
     Route: 065
  11. DIMENHYDRINATE [Suspect]
     Route: 065

REACTIONS (1)
  - Hepatic failure [Fatal]
